FAERS Safety Report 5623357-2 (Version None)
Quarter: 2008Q1

REPORT INFORMATION
  Report Type: 
  Country: None (occurrence: None)
  Receive Date: 20080212
  Receipt Date: 20080207
  Transmission Date: 20080703
  Serious: Yes (Death, Hospitalization)
  Sender: FDA-Public Use
  Company Number: US-SANOFI-SYNTHELABO-F01200800218

PATIENT
  Sex: Male
  Weight: 68.9 kg

DRUGS (11)
  1. DECADRON [Concomitant]
     Dosage: PRE-MEDICATION
     Route: 042
     Dates: start: 20080121, end: 20080121
  2. ALOXI [Concomitant]
     Route: 042
     Dates: start: 20080121, end: 20080121
  3. ZOMETA [Concomitant]
     Indication: METASTASES TO BONE
     Route: 042
     Dates: start: 20080128, end: 20080128
  4. OMEPRAZOLE [Concomitant]
     Route: 048
  5. LOTREL [Concomitant]
     Dosage: 5/20 MG
     Route: 048
  6. LORTAB [Concomitant]
     Indication: PAIN
     Dosage: 5/500 1-2 EVERY HOURS
     Route: 048
  7. FENTANYL [Concomitant]
     Dosage: CHANGE PATCH EVERY 3 DAYS
     Route: 062
  8. ASPIRIN [Concomitant]
     Route: 048
  9. ACTOS [Concomitant]
     Route: 048
  10. XELODA [Suspect]
     Dosage: 1650 MG TWICE A DAY ON DAYS 1-14 (26400 MG TOTAL DOSE ADMINISTERED THIS COURSE)
     Route: 042
     Dates: start: 20080121, end: 20080129
  11. OXALIPLATIN [Suspect]
     Indication: METASTATIC NEOPLASM
     Dosage: 238 MG TOTAL DOSE
     Route: 042
     Dates: start: 20080121, end: 20080121

REACTIONS (4)
  - CARDIO-RESPIRATORY ARREST [None]
  - DIARRHOEA [None]
  - NAUSEA [None]
  - VOMITING [None]
